FAERS Safety Report 8309420-6 (Version None)
Quarter: 2012Q2

REPORT INFORMATION
  Report Type: 
  Country: None (occurrence: None)
  Receive Date: 20120424
  Receipt Date: 20120424
  Transmission Date: 20120825
  Serious: Yes (Other)
  Sender: FDA-Public Use
  Company Number: None

PATIENT
  Age: 58 Year
  Sex: Female
  Weight: 125.1928 kg

DRUGS (4)
  1. DIOVAN [Suspect]
     Indication: HYPERTENSION
     Dosage: 160MG ONCE DAILY ORAL
     Route: 048
     Dates: start: 20111201
  2. DIOVAN [Suspect]
     Indication: TYPE 2 DIABETES MELLITUS
     Dosage: 160MG ONCE DAILY ORAL
     Route: 048
     Dates: start: 20111201
  3. DIOVAN [Suspect]
     Indication: HYPERTENSION
     Dosage: 160MG ONCE DAILY ORAL
     Route: 048
     Dates: start: 20111221
  4. DIOVAN [Suspect]
     Indication: TYPE 2 DIABETES MELLITUS
     Dosage: 160MG ONCE DAILY ORAL
     Route: 048
     Dates: start: 20111221

REACTIONS (3)
  - DEPRESSION [None]
  - DEPRESSED MOOD [None]
  - OEDEMA PERIPHERAL [None]
